FAERS Safety Report 11857923 (Version 4)
Quarter: 2016Q1

REPORT INFORMATION
  Report Type: Report from Study
  Country: US (occurrence: US)
  Receive Date: 20151222
  Receipt Date: 20160210
  Transmission Date: 20160526
  Serious: Yes (Hospitalization)
  Sender: FDA-Public Use
  Company Number: US-JNJFOC-20151211990

PATIENT
  Age: 20 Year
  Sex: Female
  Weight: 64.86 kg

DRUGS (7)
  1. SIMPONI [Suspect]
     Active Substance: GOLIMUMAB
     Indication: COLITIS ULCERATIVE
     Route: 058
     Dates: start: 20151210
  2. DELZICOL [Concomitant]
     Active Substance: MESALAMINE
     Dosage: QAM
     Route: 065
     Dates: start: 20150616, end: 20150807
  3. LUTERA [Concomitant]
     Active Substance: ETHINYL ESTRADIOL\LEVONORGESTREL
     Indication: CONTRACEPTION
     Dosage: 0.1 - 20 MG-MCG
     Route: 065
  4. PREDNISONE. [Concomitant]
     Active Substance: PREDNISONE
     Indication: COLITIS
     Dosage: I TABLET WITH FOOD OR MILK 6 EVERY MORNING
     Route: 065
     Dates: start: 20150616, end: 20160106
  5. UCERIS [Concomitant]
     Active Substance: BUDESONIDE
     Route: 048
  6. DICYCLOMINE HYDROCHLORIDE. [Concomitant]
     Active Substance: DICYCLOMINE HYDROCHLORIDE
     Route: 048
  7. LIALDA [Concomitant]
     Active Substance: MESALAMINE
     Dosage: QAM
     Route: 048
     Dates: start: 20150612, end: 20150618

REACTIONS (13)
  - Chest pain [Unknown]
  - Colitis ulcerative [Unknown]
  - Palpitations [Recovered/Resolved]
  - Chromaturia [Not Recovered/Not Resolved]
  - Fatigue [Unknown]
  - Abdominal pain upper [Unknown]
  - Eye pain [Not Recovered/Not Resolved]
  - Headache [Unknown]
  - Respiratory rate increased [Recovered/Resolved]
  - Sensory disturbance [Not Recovered/Not Resolved]
  - Hypopnoea [Unknown]
  - Micturition frequency decreased [Not Recovered/Not Resolved]
  - Urine output decreased [Unknown]

NARRATIVE: CASE EVENT DATE: 201512
